FAERS Safety Report 9549623 (Version 1)
Quarter: 2013Q3

REPORT INFORMATION
  Report Type: Report from Study
  Country: CO (occurrence: CO)
  Receive Date: 20130924
  Receipt Date: 20130924
  Transmission Date: 20140515
  Serious: Yes (Death, Other)
  Sender: FDA-Public Use
  Company Number: CO-US-EMD SERONO, INC.-7238011

PATIENT
  Age: 45 Year
  Sex: Female
  Weight: 24 kg

DRUGS (2)
  1. SAIZEN [Suspect]
     Indication: HORMONE LEVEL ABNORMAL
     Dosage: 7 DAYS PER WEEK
     Route: 058
     Dates: start: 20120626, end: 201212
  2. TERMOPRESINE [Suspect]
     Indication: PRODUCT USED FOR UNKNOWN INDICATION
     Dosage: PASTE
     Route: 060
     Dates: start: 1993

REACTIONS (3)
  - Head and neck cancer [Unknown]
  - Bacterial infection [Unknown]
  - Death [Fatal]
